FAERS Safety Report 7733337-9 (Version None)
Quarter: 2011Q3

REPORT INFORMATION
  Report Type: 
  Country: None (occurrence: None)
  Receive Date: 20110907
  Receipt Date: 20110831
  Transmission Date: 20111222
  Serious: Yes (Hospitalization)
  Sender: FDA-Public Use
  Company Number: JP-GENZYME-FLUD-1000363

PATIENT
  Age: 69 Year
  Sex: Male

DRUGS (19)
  1. RITUXIMAB [Suspect]
     Dosage: 375 MG/M2, QD
     Route: 065
     Dates: start: 20090312, end: 20090312
  2. DOMPERIDONE [Concomitant]
     Indication: PROPHYLAXIS
     Dosage: 30 MG, UNK
     Dates: start: 20080904, end: 20090331
  3. FLUDARA [Suspect]
     Dosage: 50 MG, QDX6
     Route: 048
     Dates: start: 20090327, end: 20090401
  4. ALLOPURINOL [Concomitant]
     Indication: PROPHYLAXIS
     Dosage: 100 MG, UNK
     Dates: start: 20080904
  5. RITUXIMAB [Suspect]
     Dosage: 375 MG/M2, QD
     Route: 065
     Dates: start: 20080918, end: 20080918
  6. RITUXIMAB [Suspect]
     Dosage: 375 MG/M2, QD
     Route: 065
     Dates: start: 20081016, end: 20081016
  7. RITUXIMAB [Suspect]
     Dosage: 375 MG/M2, QD
     Route: 065
     Dates: start: 20081127, end: 20081127
  8. FLUDARA [Suspect]
     Dosage: 60 MG, QDX5
     Route: 048
     Dates: start: 20081003, end: 20081007
  9. RITUXIMAB [Suspect]
     Dosage: 375 MG/M2, QD
     Route: 065
     Dates: start: 20090129, end: 20090129
  10. ACYCLOVIR [Concomitant]
     Indication: PROPHYLAXIS
     Dosage: 200 MG, UNK
     Route: 048
     Dates: start: 20081016, end: 20090821
  11. FLUDARA [Suspect]
     Indication: B-CELL LYMPHOMA
     Dosage: 60 MG, QDX5
     Route: 048
     Dates: start: 20080905, end: 20080909
  12. RITUXIMAB [Suspect]
     Dosage: 375 MG/M2, QD
     Route: 065
     Dates: start: 20081002, end: 20081002
  13. RITUXIMAB [Suspect]
     Dosage: 375 MG/M2, QD
     Route: 065
     Dates: start: 20081030, end: 20081030
  14. FLUDARA [Suspect]
     Dosage: 60 MG, QDX5
     Route: 048
     Dates: start: 20081031, end: 20081104
  15. RITUXIMAB [Suspect]
     Indication: B-CELL LYMPHOMA
     Dosage: 375 MG/M2, QD
     Route: 065
     Dates: start: 20080904, end: 20080904
  16. FLUDARA [Suspect]
     Dosage: 60 MG, QDX5
     Route: 048
     Dates: start: 20081128, end: 20081202
  17. FLUDARA [Suspect]
     Dosage: 60 MG, QDX5
     Route: 048
     Dates: start: 20090130, end: 20090203
  18. SULFAMETHOXAZOLE W [Concomitant]
     Indication: PROPHYLAXIS
     Dosage: 2 DF, QOD
     Dates: start: 20080904
  19. REBAMIPIDE [Concomitant]
     Indication: PROPHYLAXIS
     Dosage: 200 MG, UNK
     Dates: start: 20080904

REACTIONS (4)
  - HEPATIC FUNCTION ABNORMAL [None]
  - NEURALGIA [None]
  - VARICELLA [None]
  - PYREXIA [None]
